FAERS Safety Report 15824595 (Version 2)
Quarter: 2020Q1

REPORT INFORMATION
  Report Type: Spontaneous
  Country: GB (occurrence: GB)
  Receive Date: 20190115
  Receipt Date: 20200110
  Transmission Date: 20200409
  Serious: Yes (Hospitalization, Other)
  Sender: FDA-Public Use
  Company Number: GB-AXELLIA-002163

PATIENT
  Age: 67 Year
  Sex: Male
  Weight: 82.6 kg

DRUGS (14)
  1. AMLODIPINE [Concomitant]
     Active Substance: AMLODIPINE BESYLATE
  2. EZETIMIBE. [Concomitant]
     Active Substance: EZETIMIBE
  3. SPIRONOLACTONE. [Concomitant]
     Active Substance: SPIRONOLACTONE
  4. RIFAMPICIN [Concomitant]
     Active Substance: RIFAMPIN
  5. DAPTOMYCIN. [Suspect]
     Active Substance: DAPTOMYCIN
     Indication: HIP ARTHROPLASTY
     Route: 042
     Dates: start: 20181019, end: 20181101
  6. FUROSEMIDE. [Concomitant]
     Active Substance: FUROSEMIDE
  7. DOCUSATE [Concomitant]
     Active Substance: DOCUSATE
  8. ANUSOL NOS [Concomitant]
     Active Substance: BALSAM PERU\BENZYL BENZOATE\BISMUTH HYDROXIDE\BISMUTH SUBGALLATE\HYDROCORTISONE ACETATE\ZINC OXIDE
  9. LANSOPRAZOLE. [Concomitant]
     Active Substance: LANSOPRAZOLE
  10. RAMIPRIL. [Concomitant]
     Active Substance: RAMIPRIL
  11. CLOPIDOGREL [Concomitant]
     Active Substance: CLOPIDOGREL BISULFATE
  12. IRON [Concomitant]
     Active Substance: IRON
  13. BISOPROLOL [Concomitant]
     Active Substance: BISOPROLOL
  14. CIPROFLOXACIN. [Concomitant]
     Active Substance: CIPROFLOXACIN

REACTIONS (6)
  - Circulatory collapse [Unknown]
  - Off label use [Unknown]
  - Haemoptysis [Unknown]
  - Pyrexia [Unknown]
  - Pneumocystis jirovecii pneumonia [Recovered/Resolved]
  - Cough [Unknown]

NARRATIVE: CASE EVENT DATE: 20181019
